FAERS Safety Report 6882498-2 (Version None)
Quarter: 2010Q3

REPORT INFORMATION
  Report Type: 
  Country: None (occurrence: None)
  Receive Date: 20100729
  Receipt Date: 20100718
  Transmission Date: 20110219
  Serious: Yes (Death)
  Sender: FDA-Public Use
  Company Number: TW-BAXTER-2010BH018494

PATIENT
  Sex: Male

DRUGS (4)
  1. DIANEAL [Suspect]
     Indication: PERITONEAL DIALYSIS
     Route: 033
     Dates: start: 20091101, end: 20100101
  2. DIANEAL [Suspect]
     Route: 033
     Dates: start: 20091101, end: 20100101
  3. DIANEAL [Suspect]
     Indication: PERITONEAL DIALYSIS
     Route: 033
     Dates: start: 20091101
  4. DIANEAL [Suspect]
     Route: 033
     Dates: start: 20091101

REACTIONS (1)
  - DEATH [None]
